FAERS Safety Report 15392588 (Version 1)
Quarter: 2018Q3

REPORT INFORMATION
  Report Type: Spontaneous
  Country: US (occurrence: US)
  Receive Date: 20180911
  Receipt Date: 20180911
  Transmission Date: 20181010
  Serious: Yes (Other)
  Sender: FDA-Public Use
  Company Number: None

PATIENT
  Sex: Female

DRUGS (11)
  1. ESTRADIOL 1MG [Concomitant]
  2. ESTROG/MTEST 1.25?2.5 [Concomitant]
  3. LYRICA [Concomitant]
     Active Substance: PREGABALIN
  4. ZOLPIDEM [Concomitant]
     Active Substance: ZOLPIDEM\ZOLPIDEM TARTRATE
  5. VALSART/HCTZ TAB 320?12.5 [Concomitant]
  6. DULOXETINE 60MG [Concomitant]
     Active Substance: DULOXETINE
  7. COSENTYX [Suspect]
     Active Substance: SECUKINUMAB
     Indication: PSORIATIC ARTHROPATHY
     Dosage: ?          OTHER FREQUENCY:EVERY 4 WEEKS;?
     Route: 058
     Dates: start: 20171108
  8. OTEZLA [Concomitant]
     Active Substance: APREMILAST
  9. CETIRIZINE [Concomitant]
     Active Substance: CETIRIZINE HYDROCHLORIDE
  10. FLUOCINONIDE 0.05% [Concomitant]
     Active Substance: FLUOCINONIDE
  11. TRINTELLIX [Concomitant]
     Active Substance: VORTIOXETINE HYDROBROMIDE

REACTIONS (1)
  - Rash [None]
